FAERS Safety Report 14165234 (Version 5)
Quarter: 2018Q2

REPORT INFORMATION
  Report Type: Spontaneous
  Country: FR (occurrence: FR)
  Receive Date: 20171107
  Receipt Date: 20180608
  Transmission Date: 20180711
  Serious: Yes (Congenital Anomaly, Other)
  Sender: FDA-Public Use
  Company Number: FR-AUROBINDO-AUR-APL-2017-43220

PATIENT

DRUGS (5)
  1. PREDNISONE. [Suspect]
     Active Substance: PREDNISONE
     Indication: IMMUNOSUPPRESSANT DRUG THERAPY
     Dosage: 10 MILLIGRAM
     Route: 064
  2. PROGESTERONE. [Concomitant]
     Active Substance: PROGESTERONE
     Indication: PRODUCT USED FOR UNKNOWN INDICATION
     Dosage: UNK
     Route: 064
  3. TACROLIMUS. [Suspect]
     Active Substance: TACROLIMUS
     Indication: IMMUNOSUPPRESSANT DRUG THERAPY
     Dosage: 6 MG, DAILY
     Route: 064
  4. HEPARIN [Concomitant]
     Active Substance: HEPARIN SODIUM
     Indication: PRODUCT USED FOR UNKNOWN INDICATION
     Dosage: 4000 IU/DAY
     Route: 064
  5. ASPIRIN                            /00002701/ [Concomitant]
     Active Substance: ASPIRIN
     Indication: PRODUCT USED FOR UNKNOWN INDICATION
     Dosage: 100 MG/DAY
     Route: 064

REACTIONS (12)
  - Cerebral ventricle dilatation [Unknown]
  - Congenital central nervous system anomaly [Unknown]
  - Congenital hydrocephalus [Unknown]
  - Spleen malformation [Unknown]
  - Dilatation ventricular [Unknown]
  - Ventricular enlargement [Unknown]
  - Thrombocytopenia [Unknown]
  - Congenital toxoplasmosis [Unknown]
  - Encephalopathy [Unknown]
  - Foetal exposure during pregnancy [Unknown]
  - Bone disorder [Unknown]
  - Splenomegaly [Unknown]
